FAERS Safety Report 7308373-7 (Version None)
Quarter: 2011Q1

REPORT INFORMATION
  Report Type: 
  Country: None (occurrence: None)
  Receive Date: 20110223
  Receipt Date: 20110217
  Transmission Date: 20110831
  Serious: Yes (Other)
  Sender: FDA-Public Use
  Company Number: B0701617A

PATIENT
  Age: 26 Year
  Sex: Male

DRUGS (2)
  1. ALQUEN [Suspect]
     Indication: ABDOMINAL PAIN
     Route: 048
     Dates: start: 20110118, end: 20110126
  2. LANTUS [Concomitant]
     Dates: start: 20090616

REACTIONS (1)
  - HYPOGLYCAEMIA [None]
